FAERS Safety Report 9911843 (Version 2)
Quarter: 2014Q1

REPORT INFORMATION
  Report Type: Spontaneous
  Country: US (occurrence: US)
  Receive Date: 20140219
  Receipt Date: 20140219
  Transmission Date: 20141002
  Serious: No
  Sender: FDA-Public Use
  Company Number: US-MYLANLABS-2013S1007743

PATIENT
  Age: 6 Decade
  Sex: Male
  Weight: 45.35 kg

DRUGS (1)
  1. EPIPEN [Suspect]
     Dosage: UNK
     Dates: start: 20130325

REACTIONS (3)
  - Injection site pain [Recovered/Resolved]
  - Injury associated with device [Recovered/Resolved]
  - Product quality issue [None]
